FAERS Safety Report 21973522 (Version 7)
Quarter: 2024Q3

REPORT INFORMATION
  Report Type: Spontaneous
  Country: US (occurrence: US)
  Receive Date: 20230209
  Receipt Date: 20240916
  Transmission Date: 20241017
  Serious: No
  Sender: PFIZER
  Company Number: US-PFIZER INC-PV202300025055

PATIENT
  Age: 84 Year
  Sex: Female

DRUGS (2)
  1. IBRANCE [Suspect]
     Active Substance: PALBOCICLIB
     Indication: Breast cancer female
     Dosage: 125 MG, DAILY, WITH FOOD, FOR 21 DAYS, THEN 7 DAYS OFF
     Route: 048
     Dates: start: 20230306
  2. IBRANCE [Suspect]
     Active Substance: PALBOCICLIB
     Indication: Breast cancer metastatic
     Dosage: TAKE 1 TABLET (100 MG TOTAL), BY MOUTH, DAILY, WITH FOOD, TAKE FOR 21 DAYS, THEN OFF FOR 7 DAYS
     Route: 048

REACTIONS (2)
  - Fatigue [Unknown]
  - Platelet count decreased [Unknown]
